FAERS Safety Report 14421355 (Version 7)
Quarter: 2018Q3

REPORT INFORMATION
  Report Type: Report from Study
  Country: None (occurrence: BR)
  Receive Date: 20180122
  Receipt Date: 20180824
  Transmission Date: 20181010
  Serious: Yes (Hospitalization)
  Sender: FDA-Public Use
  Company Number: BR-ABBVIE-18P-020-2223541-00

PATIENT
  Age: 62 Year
  Sex: Female
  Weight: 72 kg

DRUGS (42)
  1. CLONAZEPAM. [Concomitant]
     Active Substance: CLONAZEPAM
     Indication: ANXIETY
     Route: 048
     Dates: start: 20160830
  2. BUDESONIDE. [Concomitant]
     Active Substance: BUDESONIDE
     Indication: CHRONIC OBSTRUCTIVE PULMONARY DISEASE
     Route: 055
     Dates: start: 20160720
  3. CODEINE [Concomitant]
     Active Substance: CODEINE
     Indication: ABDOMINAL PAIN
     Route: 048
     Dates: start: 20170714
  4. CEFEPIME [Concomitant]
     Active Substance: CEFEPIME HYDROCHLORIDE
     Indication: ENDOCARDITIS
     Route: 042
     Dates: start: 20170720
  5. METOPROLOL SUCCINATE. [Concomitant]
     Active Substance: METOPROLOL SUCCINATE
     Indication: CARDIAC FAILURE
     Route: 048
     Dates: start: 20170720
  6. METRONIDAZOLE. [Concomitant]
     Active Substance: METRONIDAZOLE
     Indication: VAGINAL DISORDER
     Route: 048
     Dates: start: 20170724
  7. METRONIDAZOLE. [Concomitant]
     Active Substance: METRONIDAZOLE
     Indication: SOFT TISSUE INFECTION
  8. ENALAPRIL [Concomitant]
     Active Substance: ENALAPRIL
     Indication: CARDIAC FAILURE
     Route: 048
     Dates: start: 20170720
  9. PARACETAMOL [Concomitant]
     Active Substance: ACETAMINOPHEN
     Indication: BACK PAIN
     Route: 048
     Dates: start: 20170714
  10. SERTRALINE [Concomitant]
     Active Substance: SERTRALINE HYDROCHLORIDE
     Indication: ANXIETY
     Route: 048
     Dates: start: 20171228
  11. MINERAL OIL. [Concomitant]
     Active Substance: MINERAL OIL
     Indication: CONSTIPATION
     Dosage: 10 ML (MILLILITER; CM3)
     Route: 048
     Dates: start: 20170716
  12. ENALAPRIL [Concomitant]
     Active Substance: ENALAPRIL
     Indication: CARDIAC FAILURE CONGESTIVE
     Route: 048
     Dates: start: 20170729
  13. ENALAPRIL [Concomitant]
     Active Substance: ENALAPRIL
     Route: 048
     Dates: start: 20170902
  14. DOMPERIDONA [Concomitant]
     Indication: PROPHYLAXIS OF NAUSEA AND VOMITING
     Route: 048
     Dates: start: 20170730
  15. HYDRALAZINE [Concomitant]
     Active Substance: HYDRALAZINE HYDROCHLORIDE
     Indication: HYPERTENSION
     Route: 048
     Dates: start: 2014
  16. VERAPAMIL [Concomitant]
     Active Substance: VERAPAMIL HYDROCHLORIDE
     Indication: HYPERTENSION
     Route: 048
     Dates: start: 2010
  17. BEROTEC [Concomitant]
     Active Substance: FENOTEROL HYDROBROMIDE
     Indication: RESPIRATORY TRACT INFECTION
     Dosage: INTRANASAL
     Dates: start: 20170328
  18. CODEINE [Concomitant]
     Active Substance: CODEINE
     Route: 048
     Dates: start: 20170905
  19. FUROSEMIDE. [Concomitant]
     Active Substance: FUROSEMIDE
     Route: 042
     Dates: start: 20170802
  20. ESMOLOL [Concomitant]
     Active Substance: ESMOLOL HYDROCHLORIDE
     Indication: CARDIAC FAILURE
     Dosage: 1 ML ((MILLILITER; CM3))
     Route: 042
     Dates: start: 20170730
  21. DESLANOSIDE [Concomitant]
     Active Substance: DESLANOSIDE
     Indication: CARDIAC FAILURE
     Route: 042
     Dates: start: 20170730
  22. PROPATILNITRATO [Concomitant]
     Indication: CARDIAC FAILURE
     Route: 060
     Dates: start: 20170804
  23. TRAMADOL. [Concomitant]
     Active Substance: TRAMADOL
     Indication: PAIN
     Route: 048
     Dates: start: 20170905
  24. CODEINE [Concomitant]
     Active Substance: CODEINE
     Indication: BACK PAIN
     Route: 048
     Dates: start: 20170905
  25. GA101 [Suspect]
     Active Substance: OBINUTUZUMAB
     Indication: CHRONIC LYMPHOCYTIC LEUKAEMIA
     Dosage: THE MOST RECENT DOSE GIVEN PRIOR TO EVENTS ONSET: 28/NOV/2016
     Route: 042
     Dates: start: 20160704
  26. HEPARIN [Concomitant]
     Active Substance: HEPARIN SODIUM
     Indication: THROMBOSIS PROPHYLAXIS
     Route: 058
     Dates: start: 20170714
  27. WARFARIN [Concomitant]
     Active Substance: WARFARIN
     Indication: ATRIAL FIBRILLATION
     Route: 048
     Dates: start: 20170818
  28. TORSILAX [Concomitant]
     Active Substance: ACETAMINOPHEN\CAFFEINE\CARISOPRODOL\DICLOFENAC
     Indication: ARTHRALGIA
     Route: 048
     Dates: start: 20180305
  29. VENETOCLAX. [Suspect]
     Active Substance: VENETOCLAX
     Indication: CHRONIC LYMPHOCYTIC LEUKAEMIA
     Dosage: THE MOST RECENT DOSE (400MG) GIVEN PRIOR TO SAES ONSET: 28 NOV 2016, START TIME 1210
     Route: 048
     Dates: start: 20160725
  30. MYCOSTATIN [Concomitant]
     Active Substance: NYSTATIN
     Indication: SKIN LESION
     Route: 061
  31. VANCOMYCIN [Concomitant]
     Active Substance: VANCOMYCIN
     Indication: INFECTION
     Route: 042
     Dates: start: 20170716
  32. LOSARTAN. [Concomitant]
     Active Substance: LOSARTAN
     Indication: HYPERTENSION
     Route: 048
     Dates: start: 2014
  33. DIPYRONE [Concomitant]
     Active Substance: DIPYRONE
     Indication: BACK PAIN
     Route: 042
     Dates: start: 20170713
  34. CHLORHEXIDINE [Concomitant]
     Active Substance: CHLORHEXIDINE
     Indication: INFECTION PROPHYLAXIS
     Dosage: 100 ML (MILLILITER; CM3)
     Route: 048
     Dates: start: 20170731
  35. AMIODARONE [Concomitant]
     Active Substance: AMIODARONE
     Indication: ATRIAL FIBRILLATION
     Route: 042
     Dates: start: 20170803
  36. CLONIDINE. [Concomitant]
     Active Substance: CLONIDINE
     Indication: HYPERTENSION
     Route: 048
     Dates: start: 2014
  37. SPIRONOLACTONE. [Concomitant]
     Active Substance: SPIRONOLACTONE
     Indication: HYPERTENSION
     Route: 048
     Dates: start: 2010
  38. SIMVASTATIN. [Concomitant]
     Active Substance: SIMVASTATIN
     Indication: CARDIOVASCULAR DISORDER
     Route: 048
     Dates: start: 2010
  39. FORMOTEROL [Concomitant]
     Active Substance: FORMOTEROL
     Indication: CHRONIC OBSTRUCTIVE PULMONARY DISEASE
     Route: 048
     Dates: start: 20160720
  40. FUROSEMIDE. [Concomitant]
     Active Substance: FUROSEMIDE
     Indication: CARDIAC FAILURE
     Route: 042
     Dates: start: 20170720
  41. MEPROPROLOL SUCCINATE [Concomitant]
     Indication: CARDIAC FAILURE CONGESTIVE
     Route: 054
     Dates: start: 20170825
  42. CALCIUM CARBONATE. [Concomitant]
     Active Substance: CALCIUM CARBONATE
     Indication: OSTEOPOROSIS PROPHYLAXIS
     Route: 048
     Dates: start: 20171218

REACTIONS (2)
  - Dyspnoea [Recovered/Resolved]
  - Toxicity to various agents [Recovered/Resolved]

NARRATIVE: CASE EVENT DATE: 20180109
